FAERS Safety Report 21663723 (Version 1)
Quarter: 2022Q4

REPORT INFORMATION
  Report Type: Spontaneous
  Country: US (occurrence: None)
  Receive Date: 20221130
  Receipt Date: 20221130
  Transmission Date: 20230112
  Serious: No
  Sender: FDA-Public Use
  Company Number: 2022A371811

PATIENT
  Age: 80 Year
  Sex: Male
  Weight: 99.8 kg

DRUGS (1)
  1. BRILINTA [Suspect]
     Active Substance: TICAGRELOR
     Indication: Angina pectoris
     Route: 048

REACTIONS (4)
  - Decreased appetite [Unknown]
  - Sleep disorder [Unknown]
  - Constipation [Unknown]
  - Irritability [Unknown]

NARRATIVE: CASE EVENT DATE: 20221008
